FAERS Safety Report 20654816 (Version 1)
Quarter: 2022Q1

REPORT INFORMATION
  Report Type: Spontaneous
  Country: US (occurrence: None)
  Receive Date: 20220330
  Receipt Date: 20220330
  Transmission Date: 20220423
  Serious: Yes (Life-Threatening, Hospitalization, Disabling)
  Sender: FDA-Public Use
  Company Number: None

PATIENT
  Age: 30 Year
  Sex: Male
  Weight: 83.25 kg

DRUGS (1)
  1. AMBIEN [Suspect]
     Active Substance: ZOLPIDEM TARTRATE
     Indication: Insomnia
     Dates: start: 20210409, end: 20210614

REACTIONS (11)
  - Withdrawal syndrome [None]
  - Suicidal ideation [None]
  - Insomnia [None]
  - Depersonalisation/derealisation disorder [None]
  - Anxiety [None]
  - Fatigue [None]
  - Anhedonia [None]
  - Depression [None]
  - Abulia [None]
  - Tachyphrenia [None]
  - Thinking abnormal [None]

NARRATIVE: CASE EVENT DATE: 20210521
